FAERS Safety Report 6847892-4 (Version None)
Quarter: 2010Q3

REPORT INFORMATION
  Report Type: 
  Country: None (occurrence: None)
  Receive Date: 20100716
  Receipt Date: 20100712
  Transmission Date: 20110219
  Serious: Yes (Disabling)
  Sender: FDA-Public Use
  Company Number: AU-WYE-G05526410

PATIENT
  Age: 82 Year
  Sex: Female

DRUGS (5)
  1. PRISTIQ [Suspect]
     Dosage: TOOK 1 TABLET
     Dates: start: 20100119
  2. PRISTIQ [Suspect]
     Dosage: UNKNOWN
     Dates: start: 20100204
  3. PRISTIQ [Suspect]
     Dosage: TOOK 1/3 OF A TABLET
     Dates: start: 20100201
  4. ALEPAM [Concomitant]
     Dosage: 1 AT NIGHT
  5. DIAZEPAM [Concomitant]
     Dosage: 1 IN THE DAYTIME

REACTIONS (9)
  - ACTIVITIES OF DAILY LIVING IMPAIRED [None]
  - DISORIENTATION [None]
  - DRUG INEFFECTIVE [None]
  - DYSPHONIA [None]
  - FEELING ABNORMAL [None]
  - IMPAIRED DRIVING ABILITY [None]
  - SENSATION OF HEAVINESS [None]
  - SWELLING FACE [None]
  - THROAT TIGHTNESS [None]
